FAERS Safety Report 12607783 (Version 8)
Quarter: 2016Q4

REPORT INFORMATION
  Report Type: Report from Study
  Country: US (occurrence: US)
  Receive Date: 20160729
  Receipt Date: 20161024
  Transmission Date: 20170207
  Serious: Yes (Other)
  Sender: FDA-Public Use
  Company Number: US-GILEAD-2016-0222088

PATIENT
  Age: 71 Year
  Sex: Female
  Weight: 85.99 kg

DRUGS (10)
  1. TEMAZEPAM. [Concomitant]
     Active Substance: TEMAZEPAM
     Dosage: 15 MG, QD, HS
     Route: 048
  2. TIZANIDINE HYDROCHLORIDE. [Concomitant]
     Active Substance: TIZANIDINE HYDROCHLORIDE
     Dosage: 2 MG, Q 8H PRN
     Route: 048
     Dates: start: 20150331
  3. IDELALISIB [Suspect]
     Active Substance: IDELALISIB
     Dosage: 150 MG, BID
     Route: 048
     Dates: start: 20160628, end: 20160819
  4. IDELALISIB [Suspect]
     Active Substance: IDELALISIB
     Dosage: 150 MG, BID
     Route: 048
     Dates: start: 20160826
  5. IBUPROFEN. [Concomitant]
     Active Substance: IBUPROFEN
     Indication: PAIN
     Dosage: UNK
  6. IDELALISIB [Suspect]
     Active Substance: IDELALISIB
     Indication: B-CELL LYMPHOMA
     Dosage: 150 UNK, UNK
     Route: 048
     Dates: start: 20160616
  7. LEVOTHYROXINE SODIUM. [Concomitant]
     Active Substance: LEVOTHYROXINE SODIUM
     Dosage: 100 MCG
     Route: 048
     Dates: start: 20140716
  8. CYMBALTA [Concomitant]
     Active Substance: DULOXETINE HYDROCHLORIDE
     Dosage: 60 MG, QD
     Route: 048
  9. WELLBUTRIN [Concomitant]
     Active Substance: BUPROPION HYDROCHLORIDE
     Dosage: 150 MG SUSTAINED ACTION; 0.5 BID; 1/2 TAB 75 MG
     Route: 048
  10. ZOLPIDEM TARTRATE. [Concomitant]
     Active Substance: ZOLPIDEM TARTRATE
     Dosage: 10 MG, QD AT BEDTIME AS NEEDED FOR SLEEP
     Route: 048

REACTIONS (34)
  - Hallucination [Not Recovered/Not Resolved]
  - Thinking abnormal [Unknown]
  - Nasal congestion [Unknown]
  - Hot flush [Not Recovered/Not Resolved]
  - Respiratory fume inhalation disorder [Unknown]
  - Feeling abnormal [Not Recovered/Not Resolved]
  - Pollakiuria [Not Recovered/Not Resolved]
  - Memory impairment [Not Recovered/Not Resolved]
  - Nerve compression [Not Recovered/Not Resolved]
  - Decreased appetite [Recovering/Resolving]
  - Depression [Not Recovered/Not Resolved]
  - Cough [Recovered/Resolved]
  - Epistaxis [Unknown]
  - Laceration [Recovering/Resolving]
  - Mass [Recovered/Resolved]
  - Night sweats [Recovering/Resolving]
  - Insomnia [Recovered/Resolved]
  - Contusion [Unknown]
  - Joint injury [Unknown]
  - Appetite disorder [Unknown]
  - Bronchitis [Not Recovered/Not Resolved]
  - Drug ineffective [Unknown]
  - Flushing [Not Recovered/Not Resolved]
  - Tumour pain [Not Recovered/Not Resolved]
  - Fatigue [Not Recovered/Not Resolved]
  - Sudden onset of sleep [Unknown]
  - Rhinorrhoea [Recovering/Resolving]
  - Weight decreased [Unknown]
  - Feeling cold [Not Recovered/Not Resolved]
  - Dizziness [Not Recovered/Not Resolved]
  - Mass [Recovering/Resolving]
  - Hyperhidrosis [Not Recovered/Not Resolved]
  - Chromaturia [Not Recovered/Not Resolved]
  - Chest discomfort [Not Recovered/Not Resolved]
